FAERS Safety Report 8373815-5 (Version None)
Quarter: 2012Q2

REPORT INFORMATION
  Report Type: 
  Country: None (occurrence: None)
  Receive Date: 20120521
  Receipt Date: 20120517
  Transmission Date: 20120825
  Serious: Yes (Disabling, Other)
  Sender: FDA-Public Use
  Company Number: CA-BAYER-2012-015276

PATIENT
  Age: 65 Year
  Sex: Female

DRUGS (5)
  1. GLUCOSAMINE [Concomitant]
  2. MULTI-VITAMINS [Concomitant]
  3. AVELOX [Suspect]
     Indication: UPPER RESPIRATORY TRACT INFECTION
     Dosage: UNK
     Route: 048
     Dates: start: 20110201, end: 20110201
  4. OTHER ANTI-ASTHMATICS, INHALANTS [Concomitant]
  5. SPIRIVA [Concomitant]

REACTIONS (10)
  - CHEST DISCOMFORT [None]
  - JOINT SWELLING [None]
  - NAUSEA [None]
  - HEADACHE [None]
  - MUSCLE SPASMS [None]
  - OEDEMA PERIPHERAL [None]
  - DYSPNOEA [None]
  - GAIT DISTURBANCE [None]
  - PARAESTHESIA [None]
  - ARTHRALGIA [None]
